FAERS Safety Report 6733708-3 (Version None)
Quarter: 2010Q2

REPORT INFORMATION
  Report Type: 
  Country: None (occurrence: None)
  Receive Date: 20100520
  Receipt Date: 20100511
  Transmission Date: 20101027
  Serious: Yes (Hospitalization)
  Sender: FDA-Public Use
  Company Number: US-RB-008976-10

PATIENT
  Age: 54 Year
  Sex: Male

DRUGS (2)
  1. SUBOXONE [Suspect]
     Route: 060
     Dates: start: 20070101, end: 20100503
  2. METHADONE [Concomitant]

REACTIONS (1)
  - PNEUMONIA [None]
